FAERS Safety Report 11486747 (Version 2)
Quarter: 2015Q4

REPORT INFORMATION
  Report Type: Report from Study
  Country: CO (occurrence: CO)
  Receive Date: 20150910
  Receipt Date: 20151103
  Transmission Date: 20160304
  Serious: Yes (Hospitalization, Disabling, Other)
  Sender: FDA-Public Use
  Company Number: CO-AMGEN-COLSL2015092517

PATIENT
  Age: 41 Year
  Sex: Female
  Weight: 60 kg

DRUGS (1)
  1. VECTIBIX [Suspect]
     Active Substance: PANITUMUMAB
     Indication: COLORECTAL CANCER METASTATIC
     Dosage: 485 MG, EVERY 15 DAYS
     Route: 042
     Dates: start: 20150819

REACTIONS (2)
  - Leukopenia [Recovering/Resolving]
  - Nephrectomy [Not Recovered/Not Resolved]

NARRATIVE: CASE EVENT DATE: 2015
